FAERS Safety Report 12419723 (Version 1)
Quarter: 2016Q2

REPORT INFORMATION
  Report Type: Spontaneous
  Country: None (occurrence: None)
  Receive Date: 20160527
  Receipt Date: 20160527
  Transmission Date: 20160815
  Serious: No
  Sender: FDA-Public Use
  Company Number: None

PATIENT
  Sex: Male

DRUGS (4)
  1. TRULICITY [Suspect]
     Active Substance: DULAGLUTIDE
  2. NOVOLOG [Suspect]
     Active Substance: INSULIN ASPART
  3. LANTUS [Suspect]
     Active Substance: INSULIN GLARGINE
  4. TOUJEO [Suspect]
     Active Substance: INSULIN GLARGINE

REACTIONS (7)
  - Wrong technique in product usage process [None]
  - Blood glucose increased [None]
  - Treatment noncompliance [None]
  - Glycosylated haemoglobin increased [None]
  - Drug ineffective [None]
  - Needle issue [None]
  - Diabetic retinopathy [None]
